FAERS Safety Report 25866334 (Version 1)
Quarter: 2025Q3

REPORT INFORMATION
  Report Type: Spontaneous
  Country: CO (occurrence: CO)
  Receive Date: 20250930
  Receipt Date: 20250930
  Transmission Date: 20251020
  Serious: Yes (Other)
  Sender: BAYER HEALTHCARE PHARMACEUTICALS INC.
  Company Number: CO-BAYER-2025A129589

PATIENT
  Sex: Female

DRUGS (1)
  1. FINERENONE [Suspect]
     Active Substance: FINERENONE

REACTIONS (4)
  - Pelvic fracture [Unknown]
  - Fractured coccyx [Unknown]
  - Fall [Unknown]
  - Sciatica [Not Recovered/Not Resolved]
